FAERS Safety Report 8156317-0 (Version None)
Quarter: 2012Q1

REPORT INFORMATION
  Report Type: 
  Country: None (occurrence: None)
  Receive Date: 20120222
  Receipt Date: 20110624
  Transmission Date: 20120608
  Serious: No
  Sender: FDA-Public Use
  Company Number: US-BRISTOL-MYERS SQUIBB COMPANY-15853765

PATIENT
  Sex: Female

DRUGS (1)
  1. KENALOG [Suspect]
     Dosage: 1 DF: 2 INJECTIONS AROUND 10MAY2011

REACTIONS (5)
  - SWELLING FACE [None]
  - NIGHT SWEATS [None]
  - HEPATIC ENZYME INCREASED [None]
  - THIRST [None]
  - FATIGUE [None]
